FAERS Safety Report 4703879-9 (Version None)
Quarter: 2005Q2

REPORT INFORMATION
  Report Type: 
  Country: None (occurrence: None)
  Receive Date: 20050628
  Receipt Date: 20050620
  Transmission Date: 20051028
  Serious: Yes (Other)
  Sender: FDA-Public Use
  Company Number: 2005091061

PATIENT
  Sex: Male
  Weight: 87.5442 kg

DRUGS (15)
  1. NEURONTIN [Suspect]
     Indication: NERVE COMPRESSION
     Dosage: ORAL
     Route: 048
  2. TRAZODONE (TRAZODONE) [Concomitant]
  3. MEMANTINE (MEMANTINE) [Concomitant]
  4. FAMOTIDINE [Concomitant]
  5. ALPRAZOLAM [Concomitant]
  6. ASPIRIN [Concomitant]
  7. VICODIN [Concomitant]
  8. FOLIC ACID [Concomitant]
  9. CLONIDINE [Concomitant]
  10. ARICEPT [Concomitant]
  11. TOPROL (METOPROLOL) [Concomitant]
  12. ZOCOR [Concomitant]
  13. WELLBUTRIN [Concomitant]
  14. SEROQUEL [Concomitant]
  15. ARICEPT [Concomitant]

REACTIONS (8)
  - AORTIC ANEURYSM [None]
  - CARDIAC ANEURYSM [None]
  - CATARACT OPERATION [None]
  - CORONARY ARTERY OCCLUSION [None]
  - DRUG INEFFECTIVE [None]
  - PAIN [None]
  - ROAD TRAFFIC ACCIDENT [None]
  - SLEEP DISORDER [None]
